FAERS Safety Report 12528697 (Version 2)
Quarter: 2016Q3

REPORT INFORMATION
  Report Type: Spontaneous
  Country: US (occurrence: US)
  Receive Date: 20160705
  Receipt Date: 20160712
  Transmission Date: 20161109
  Serious: Yes (Death, Hospitalization)
  Sender: FDA-Public Use
  Company Number: US-SUNOVION-2016SUN001653

PATIENT
  Age: 36 Year
  Sex: Male
  Weight: 81.63 kg

DRUGS (3)
  1. LATUDA [Suspect]
     Active Substance: LURASIDONE HYDROCHLORIDE
     Indication: SCHIZOAFFECTIVE DISORDER
     Dosage: UNK MG, UNK
     Route: 048
     Dates: start: 201604
  2. KLONOPIN [Concomitant]
     Active Substance: CLONAZEPAM
     Dosage: 4 MG, QD
     Route: 048
     Dates: end: 20160608
  3. LATUDA [Suspect]
     Active Substance: LURASIDONE HYDROCHLORIDE
     Dosage: 60 MG, UNK
     Route: 048
     Dates: end: 20160608

REACTIONS (3)
  - Depression [Unknown]
  - Completed suicide [Fatal]
  - Anxiety [Unknown]

NARRATIVE: CASE EVENT DATE: 20160608
